FAERS Safety Report 9804934 (Version 1)
Quarter: 2014Q1

REPORT INFORMATION
  Report Type: Report from Study
  Country: US (occurrence: US)
  Receive Date: 20140108
  Receipt Date: 20140108
  Transmission Date: 20141002
  Serious: Yes (Other)
  Sender: FDA-Public Use
  Company Number: US-ROCHE-1329915

PATIENT
  Age: 70 Year
  Sex: Female
  Weight: 74.91 kg

DRUGS (7)
  1. HERCEPTIN [Suspect]
     Indication: BREAST CANCER
     Route: 042
     Dates: start: 2012
  2. XGEVA [Concomitant]
     Indication: BONE CANCER
     Route: 065
     Dates: start: 201307
  3. EXEMESTANE [Concomitant]
     Indication: NEOPLASM MALIGNANT
     Route: 048
     Dates: start: 2012
  4. DILTIAZEM [Concomitant]
     Indication: BLOOD PRESSURE
     Route: 048
  5. FUROSEMIDE [Concomitant]
     Indication: SWELLING
     Route: 048
     Dates: start: 201211
  6. KLOR-CON [Concomitant]
     Route: 048
     Dates: start: 201211
  7. FOLIC ACID [Concomitant]
     Route: 048
     Dates: start: 201211

REACTIONS (4)
  - Pneumonia [Recovered/Resolved]
  - Metastasis [Not Recovered/Not Resolved]
  - Metastases to bone [Unknown]
  - Fatigue [Unknown]
